FAERS Safety Report 18235044 (Version 1)
Quarter: 2020Q3

REPORT INFORMATION
  Report Type: Spontaneous
  Country: FR (occurrence: FR)
  Receive Date: 20200905
  Receipt Date: 20200905
  Transmission Date: 20201103
  Serious: Yes (Hospitalization, Other)
  Sender: FDA-Public Use
  Company Number: FR-AUROBINDO-AUR-APL-2020-046375

PATIENT
  Age: 79 Year
  Sex: Female
  Weight: 50 kg

DRUGS (5)
  1. IRBESARTAN. [Suspect]
     Active Substance: IRBESARTAN
     Indication: INFARCTION
     Dosage: 150 MILLIGRAM, ONCE A DAY
     Route: 048
     Dates: start: 20200430, end: 20200731
  2. HYDROCHLOROTHIAZIDE. [Suspect]
     Active Substance: HYDROCHLOROTHIAZIDE
     Indication: INFARCTION
     Dosage: 12.5 MILLIGRAM, ONCE A DAY
     Route: 048
     Dates: start: 20200430, end: 20200731
  3. ATORVASTATIN [Suspect]
     Active Substance: ATORVASTATIN
     Indication: INFARCTION
     Dosage: 40 MILLIGRAM, ONCE A DAY
     Route: 048
     Dates: start: 20200430, end: 20200731
  4. BRILIQUE [Suspect]
     Active Substance: TICAGRELOR
     Indication: INFARCTION
     Dosage: UNK
     Route: 048
     Dates: start: 20200430, end: 20200731
  5. BISOPROLOL [Suspect]
     Active Substance: BISOPROLOL
     Indication: INFARCTION
     Dosage: 25 MILLIGRAM, ONCE A DAY
     Route: 048
     Dates: start: 20200430

REACTIONS (1)
  - Febrile neutropenia [Recovered/Resolved]

NARRATIVE: CASE EVENT DATE: 20200729
